FAERS Safety Report 7153591-4 (Version None)
Quarter: 2010Q4

REPORT INFORMATION
  Report Type: 
  Country: None (occurrence: None)
  Receive Date: 20101213
  Receipt Date: 20101206
  Transmission Date: 20110411
  Serious: Yes (Hospitalization, Other)
  Sender: FDA-Public Use
  Company Number: FR-BRISTOL-MYERS SQUIBB COMPANY-15427420

PATIENT
  Age: 42 Year
  Sex: Male

DRUGS (6)
  1. KENACORT [Suspect]
     Indication: INTERVERTEBRAL DISC DISORDER
     Dosage: 2 INTRA-ARTICULAR INFILTRATIONS IN THE RIGHT ANKLE
     Route: 014
     Dates: start: 20100715
  2. NORVIR [Interacting]
     Route: 048
     Dates: start: 20090401, end: 20100921
  3. KIVEXA [Concomitant]
     Indication: HIV INFECTION
  4. INTELENCE [Concomitant]
     Indication: HIV INFECTION
  5. ISENTRESS [Concomitant]
     Indication: HIV INFECTION
     Dates: start: 20090401
  6. PREZISTA [Concomitant]
     Indication: HIV INFECTION
     Dates: start: 20090423

REACTIONS (2)
  - CUSHING'S SYNDROME [None]
  - DRUG INTERACTION [None]
